FAERS Safety Report 17907225 (Version 1)
Quarter: 2020Q2

REPORT INFORMATION
  Report Type: Spontaneous
  Country: US (occurrence: US)
  Receive Date: 20200617
  Receipt Date: 20200617
  Transmission Date: 20200714
  Serious: Yes (Life-Threatening, Other)
  Sender: FDA-Public Use
  Company Number: US-SUN PHARMACEUTICAL INDUSTRIES LTD-2020R1-249795

PATIENT
  Age: 34 Year
  Sex: Female

DRUGS (1)
  1. DIGOXIN. [Suspect]
     Active Substance: DIGOXIN
     Indication: PRODUCT USED FOR UNKNOWN INDICATION
     Dosage: UNK
     Route: 065

REACTIONS (6)
  - Coma [Recovering/Resolving]
  - Incorrect route of product administration [Unknown]
  - Foetal exposure timing unspecified [Unknown]
  - Sensory loss [Unknown]
  - Upper motor neurone lesion [Unknown]
  - Generalised tonic-clonic seizure [Unknown]
